FAERS Safety Report 11121702 (Version 2)
Quarter: 2015Q2

REPORT INFORMATION
  Report Type: Spontaneous
  Country: FR (occurrence: FR)
  Receive Date: 20150519
  Receipt Date: 20150529
  Transmission Date: 20150821
  Serious: Yes (Death, Hospitalization)
  Sender: FDA-Public Use
  Company Number: FR-AMGEN-FRASP2015046970

PATIENT
  Age: 79 Year
  Sex: Female

DRUGS (12)
  1. DIFFU K [Suspect]
     Active Substance: POTASSIUM CHLORIDE
     Indication: PRODUCT USED FOR UNKNOWN INDICATION
     Dosage: UNK UNK, QD
     Route: 048
     Dates: start: 201503, end: 20150418
  2. FLAGYL [Suspect]
     Active Substance: METRONIDAZOLE\METRONIDAZOLE HYDROCHLORIDE
     Indication: COLITIS
     Dosage: 500 MG, TID, 1 TABLET 3 TIMES PER WEEK FOR 7 DAYS
     Route: 048
     Dates: start: 20150326, end: 20150401
  3. PHOSPHORUS [Concomitant]
     Active Substance: PHOSPHORUS
  4. MIMPARA [Suspect]
     Active Substance: CINACALCET HYDROCHLORIDE
     Indication: HYPERCALCAEMIA
     Dosage: 30 MG, QOD
     Route: 048
     Dates: start: 20150303, end: 20150418
  5. UNFRACTIONATED HEPARIN [Concomitant]
     Active Substance: HEPARIN SODIUM
     Route: 058
  6. LOVENOX [Suspect]
     Active Substance: ENOXAPARIN SODIUM
     Indication: PRODUCT USED FOR UNKNOWN INDICATION
     Dosage: 4000 IU, UNK, ANTI-XA/0.4ML
     Route: 065
     Dates: end: 20150405
  7. ALDACTONE [Concomitant]
     Active Substance: SPIRONOLACTONE
  8. MAGNESIUM [Concomitant]
     Active Substance: MAGNESIUM
  9. PAMIDRONATE [Concomitant]
     Active Substance: PAMIDRONATE DISODIUM
  10. PREVISCAN (PENTOXIFYLLINE) [Suspect]
     Active Substance: PENTOXIFYLLINE
     Indication: PRODUCT USED FOR UNKNOWN INDICATION
     Dosage: 20 MG, UNK
     Route: 048
     Dates: start: 20150405, end: 20150417
  11. LASILIX                            /00032601/ [Concomitant]
     Active Substance: FUROSEMIDE
  12. UVEDOSE [Concomitant]
     Active Substance: CHOLECALCIFEROL
     Dosage: 100000 IU, UNK, SOLUTION IN A VIAL, 1 AMPOULE PER WEEK FOR THE FOLLOWING 3 WEEKS THEN 1 AMPOULE PER
     Route: 048

REACTIONS (5)
  - Hypocalcaemia [Fatal]
  - Blood phosphorus increased [Fatal]
  - Acute kidney injury [Fatal]
  - Hepatocellular injury [Fatal]
  - Hyperkalaemia [Fatal]

NARRATIVE: CASE EVENT DATE: 20150417
